FAERS Safety Report 6867568-7 (Version None)
Quarter: 2010Q3

REPORT INFORMATION
  Report Type: 
  Country: None (occurrence: None)
  Receive Date: 20100722
  Receipt Date: 20100714
  Transmission Date: 20110219
  Serious: Yes (Hospitalization)
  Sender: FDA-Public Use
  Company Number: US-AMGEN-KDC408907

PATIENT
  Sex: Female

DRUGS (25)
  1. PANITUMUMAB [Suspect]
     Indication: COLORECTAL CANCER
     Route: 042
     Dates: start: 20090730, end: 20100422
  2. AMG 479 - BLINDED [Suspect]
     Indication: NEOPLASM
     Route: 042
     Dates: start: 20090730, end: 20100422
  3. AMG 102 - BLINDED [Suspect]
     Indication: NEOPLASM MALIGNANT
     Route: 042
     Dates: start: 20090730, end: 20100422
  4. ALLEGRA [Concomitant]
     Route: 048
  5. SYNTHROID [Concomitant]
  6. TENORMIN [Concomitant]
     Route: 048
  7. LASIX [Concomitant]
  8. LANTUS [Concomitant]
     Route: 058
  9. HUMALOG [Concomitant]
  10. PROTONIX [Concomitant]
     Route: 048
  11. ATIVAN [Concomitant]
  12. COMPAZINE [Concomitant]
     Route: 048
  13. VITAMIN D [Concomitant]
     Route: 048
  14. RHINOCORT [Concomitant]
  15. DOCUSATE SODIUM [Concomitant]
  16. PROVIGIL [Concomitant]
     Route: 048
  17. NASAL SALINE [Concomitant]
  18. DOXYCYCLINE [Concomitant]
  19. TRIAMCINOLONE ACETONIDE [Concomitant]
  20. NORVASC [Concomitant]
     Route: 048
  21. IMODIUM [Concomitant]
     Route: 048
  22. MAGNESIUM OXIDE [Concomitant]
     Route: 048
  23. ZANTAC [Concomitant]
     Route: 048
  24. GARAMYCIN [Concomitant]
     Route: 061
  25. COUMADIN [Concomitant]

REACTIONS (1)
  - CEREBROVASCULAR ACCIDENT [None]
